FAERS Safety Report 5093925-8 (Version None)
Quarter: 2006Q3

REPORT INFORMATION
  Report Type: 
  Country: None (occurrence: None)
  Receive Date: 20060831
  Receipt Date: 20060606
  Transmission Date: 20061208
  Serious: Yes (Hospitalization, Other)
  Sender: FDA-Public Use
  Company Number: US-AVENTIS-200615136US

PATIENT
  Sex: Female
  Weight: 59 kg

DRUGS (7)
  1. KETEK [Suspect]
     Indication: UPPER RESPIRATORY TRACT INFECTION
     Route: 048
     Dates: start: 20051201, end: 20051205
  2. GLUCOSAMINE W/CHONDROITIN SULFATES [Concomitant]
     Route: 048
  3. CHROMIUM [Concomitant]
     Indication: BLOOD GLUCOSE
     Route: 048
  4. ESTRACE [Concomitant]
     Indication: HORMONE REPLACEMENT THERAPY
     Route: 048
  5. IBUPROFEN [Concomitant]
     Route: 048
  6. IBUPROFEN [Concomitant]
     Indication: SURGERY
     Route: 048
  7. MOTRIN [Concomitant]
     Indication: SURGERY

REACTIONS (23)
  - ABDOMINAL PAIN UPPER [None]
  - ALANINE AMINOTRANSFERASE INCREASED [None]
  - ASPARTATE AMINOTRANSFERASE INCREASED [None]
  - BLOOD ALKALINE PHOSPHATASE INCREASED [None]
  - BLOOD IRON DECREASED [None]
  - BLOOD UREA DECREASED [None]
  - BLOOD UREA INCREASED [None]
  - C-REACTIVE PROTEIN INCREASED [None]
  - CHOLECYSTITIS [None]
  - DYSPEPSIA [None]
  - EOSINOPHIL COUNT INCREASED [None]
  - FATIGUE [None]
  - HEPATOTOXICITY [None]
  - HIATUS HERNIA [None]
  - LYMPHADENOPATHY [None]
  - LYMPHOCYTE PERCENTAGE INCREASED [None]
  - NAUSEA [None]
  - PHARYNGOLARYNGEAL PAIN [None]
  - SINUSITIS [None]
  - SLEEP DISORDER [None]
  - SPIDER NAEVUS [None]
  - UPPER RESPIRATORY TRACT INFECTION [None]
  - WHITE BLOOD CELL COUNT INCREASED [None]
